FAERS Safety Report 16035029 (Version 1)
Quarter: 2019Q1

REPORT INFORMATION
  Report Type: Spontaneous
  Country: US (occurrence: US)
  Receive Date: 20190305
  Receipt Date: 20190305
  Transmission Date: 20190418
  Serious: No
  Sender: FDA-Public Use
  Company Number: US-HIKMA PHARMACEUTICALS USA INC.-US-H14001-18-08257

PATIENT
  Sex: Male

DRUGS (2)
  1. FLUTICASONE PROPIONATE METERED SPRAY [Suspect]
     Active Substance: FLUTICASONE PROPIONATE
     Indication: PRODUCT USED FOR UNKNOWN INDICATION
     Route: 045
     Dates: start: 20181102, end: 20181102
  2. FLUTICASONE PROPIONATE METERED SPRAY [Suspect]
     Active Substance: FLUTICASONE PROPIONATE
     Route: 045
     Dates: start: 20181104

REACTIONS (2)
  - Product use issue [Unknown]
  - Device malfunction [None]
